FAERS Safety Report 6376338-8 (Version None)
Quarter: 2009Q3

REPORT INFORMATION
  Report Type: 
  Country: None (occurrence: None)
  Receive Date: 20090922
  Receipt Date: 20090922
  Transmission Date: 20100115
  Serious: Yes (Hospitalization, Other)
  Sender: FDA-Public Use
  Company Number: None

PATIENT
  Age: 46 Year
  Sex: Female
  Weight: 91.173 kg

DRUGS (1)
  1. HEPARIN [Suspect]
     Indication: DIALYSIS
     Dates: start: 20090901, end: 20090918

REACTIONS (13)
  - ANXIETY [None]
  - BURNING SENSATION [None]
  - CHEST DISCOMFORT [None]
  - COLD SWEAT [None]
  - DYSPNOEA [None]
  - ERYTHEMA [None]
  - FEAR [None]
  - HYPOAESTHESIA [None]
  - MALAISE [None]
  - NAUSEA [None]
  - PANIC ATTACK [None]
  - PARAESTHESIA [None]
  - VOMITING [None]
